FAERS Safety Report 15335776 (Version 3)
Quarter: 2018Q3

REPORT INFORMATION
  Report Type: Spontaneous
  Country: MX (occurrence: MX)
  Receive Date: 20180830
  Receipt Date: 20180907
  Transmission Date: 20181010
  Serious: Yes (Death, Other)
  Sender: FDA-Public Use
  Company Number: MX-009507513-1808MEX012525

PATIENT
  Age: 52 Year
  Sex: Male

DRUGS (1)
  1. KEYTRUDA [Suspect]
     Active Substance: PEMBROLIZUMAB
     Indication: LUNG NEOPLASM MALIGNANT
     Dosage: 100 MG/4 ML SOLUTION, FIRST CYCLE
     Dates: start: 201808, end: 201808

REACTIONS (7)
  - Leukopenia [Unknown]
  - Anaemia [Unknown]
  - Neutropenia [Unknown]
  - Stevens-Johnson syndrome [Unknown]
  - Pneumonitis [Unknown]
  - Death [Fatal]
  - Rash [Unknown]

NARRATIVE: CASE EVENT DATE: 201808
